FAERS Safety Report 17288505 (Version 4)
Quarter: 2020Q3

REPORT INFORMATION
  Report Type: Spontaneous
  Country: US (occurrence: US)
  Receive Date: 20200120
  Receipt Date: 20200810
  Transmission Date: 20201102
  Serious: Yes (Other)
  Sender: FDA-Public Use
  Company Number: US-PFIZER INC-2020019537

PATIENT
  Age: 52 Year
  Sex: Female
  Weight: 54.51 kg

DRUGS (3)
  1. NARDIL [Suspect]
     Active Substance: PHENELZINE SULFATE
     Indication: DEPRESSION
     Dosage: 15 MG, 3X/DAY
     Route: 048
  2. NARDIL [Suspect]
     Active Substance: PHENELZINE SULFATE
     Indication: NEUROTRANSMITTER LEVEL ALTERED
  3. VITAMIN E [Concomitant]
     Active Substance: .ALPHA.-TOCOPHEROL
     Indication: LUNG DISORDER
     Dosage: 800 MG, UNK

REACTIONS (9)
  - Nightmare [Unknown]
  - Parkinson^s disease [Unknown]
  - Therapeutic response unexpected [Unknown]
  - Crying [Unknown]
  - Withdrawal syndrome [Unknown]
  - Conversion disorder [Unknown]
  - Arthropathy [Unknown]
  - Diabetes mellitus [Unknown]
  - Pre-existing condition improved [Unknown]

NARRATIVE: CASE EVENT DATE: 2005
